FAERS Safety Report 8122053-X (Version None)
Quarter: 2012Q1

REPORT INFORMATION
  Report Type: 
  Country: None (occurrence: None)
  Receive Date: 20120208
  Receipt Date: 20120127
  Transmission Date: 20120608
  Serious: Yes (Hospitalization, Other)
  Sender: FDA-Public Use
  Company Number: US-BAYER-2011-040896

PATIENT
  Age: 35 Year
  Sex: Female
  Weight: 84.807 kg

DRUGS (9)
  1. YASMIN [Suspect]
     Indication: MENORRHAGIA
     Dosage: UNK
     Dates: start: 20041011, end: 20041110
  2. YASMIN [Suspect]
     Dosage: UNK
     Dates: start: 20071001
  3. POTASSIUM [Concomitant]
     Dosage: 20 MEQ, UNK
     Route: 048
     Dates: start: 20071003
  4. YAZ [Suspect]
     Indication: MENORRHAGIA
     Dosage: UNK
     Dates: end: 20071101
  5. PHENTERMINE [Concomitant]
     Dosage: 15 MG, UNK
     Route: 048
     Dates: start: 20071003
  6. YASMIN [Suspect]
     Dosage: UNK
     Dates: start: 20051114, end: 20070815
  7. IBUPROFEN [Concomitant]
     Dosage: 600 MG, UNK
     Route: 048
     Dates: start: 20070929
  8. YAZ [Suspect]
     Dosage: UNK
     Dates: start: 20070901, end: 20071102
  9. YAZ [Suspect]
     Dosage: UNK

REACTIONS (11)
  - DEEP VEIN THROMBOSIS [None]
  - DYSPNOEA [None]
  - PAIN IN EXTREMITY [None]
  - ABDOMINAL PAIN UPPER [None]
  - INJURY [None]
  - EMOTIONAL DISTRESS [None]
  - CHOLELITHIASIS [None]
  - DIZZINESS [None]
  - PULMONARY EMBOLISM [None]
  - PALPITATIONS [None]
  - ANXIETY [None]
